FAERS Safety Report 4469739-6 (Version None)
Quarter: 2004Q4

REPORT INFORMATION
  Report Type: 
  Country: None (occurrence: None)
  Receive Date: 20041005
  Receipt Date: 20040929
  Transmission Date: 20050328
  Serious: Yes (Death, Life-Threatening)
  Sender: FDA-Public Use
  Company Number: 2004CG01935

PATIENT
  Age: 82 Year
  Sex: Male

DRUGS (15)
  1. OMEPRAZOLE [Suspect]
     Dosage: 20 MG QD PO
     Route: 048
     Dates: start: 20040617, end: 20040704
  2. ACETAMINOPHEN W/ PROPOXYPHENE HCL [Suspect]
     Dates: start: 20040617, end: 20040704
  3. LASIX [Suspect]
     Dosage: 40 MG TID PO
     Route: 048
     Dates: start: 20040617
  4. AUGMENTIN '125' [Suspect]
     Indication: DYSPNOEA
     Dates: start: 20040615, end: 20040617
  5. AUGMENTIN '125' [Suspect]
     Indication: PNEUMONIA ASPIRATION
     Dates: start: 20040615, end: 20040617
  6. CIPROFLOXACIN HCL [Suspect]
     Indication: DYSPNOEA
     Dosage: 1 GR TID PO
     Route: 048
     Dates: start: 20040702
  7. CIPROFLOXACIN HCL [Suspect]
     Indication: PNEUMONIA ASPIRATION
     Dosage: 1 GR TID PO
     Route: 048
     Dates: start: 20040702
  8. CIPROFLOXACIN HCL [Suspect]
     Indication: DYSPNOEA
     Dates: end: 20040615
  9. CIPROFLOXACIN HCL [Suspect]
     Indication: PNEUMONIA ASPIRATION
     Dates: end: 20040615
  10. CIPROFLOXACIN HCL [Suspect]
     Indication: DYSPNOEA
     Dates: start: 20040624, end: 20040724
  11. CIPROFLOXACIN HCL [Suspect]
     Indication: PNEUMONIA ASPIRATION
     Dates: start: 20040624, end: 20040724
  12. TAZOCILLINE [Suspect]
     Indication: PNEUMONIA ASPIRATION
     Dates: start: 20040624, end: 20040702
  13. DILTIAZEM HCL [Suspect]
     Dates: end: 20040627
  14. DIGOXIN [Suspect]
  15. PREDNISONE TAB [Suspect]

REACTIONS (11)
  - ANGIOPATHY [None]
  - DILATATION ATRIAL [None]
  - DILATATION VENTRICULAR [None]
  - HEPATITIS FULMINANT [None]
  - INFECTION [None]
  - INFLAMMATION [None]
  - LIVER DISORDER [None]
  - PNEUMONIA ASPIRATION [None]
  - PROTEUS INFECTION [None]
  - PULMONARY FIBROSIS [None]
  - PULMONARY HYPERTENSION [None]
